FAERS Safety Report 23650798 (Version 1)
Quarter: 2024Q1

REPORT INFORMATION
  Report Type: Report from Study
  Country: US (occurrence: US)
  Receive Date: 20240320
  Receipt Date: 20240320
  Transmission Date: 20240409
  Serious: No
  Sender: FDA-Public Use
  Company Number: US-DECIPHERA PHARMACEUTICALS LLC-2024US000217

PATIENT
  Age: 61 Year
  Sex: Male

DRUGS (1)
  1. QINLOCK [Suspect]
     Active Substance: RIPRETINIB
     Indication: Gastrointestinal stromal tumour
     Dosage: 150 MILLIGRAM, QD
     Route: 048
     Dates: start: 20230721

REACTIONS (5)
  - Herpes zoster [Unknown]
  - Tongue discomfort [Unknown]
  - Tooth disorder [Unknown]
  - Limb discomfort [Unknown]
  - Burning sensation [Unknown]

NARRATIVE: CASE EVENT DATE: 20240101
